FAERS Safety Report 16592312 (Version 1)
Quarter: 2019Q3

REPORT INFORMATION
  Report Type: Report from Study
  Country: IT (occurrence: IT)
  Receive Date: 20190718
  Receipt Date: 20190718
  Transmission Date: 20191004
  Serious: Yes (Other)
  Sender: FDA-Public Use
  Company Number: IT-GILEAD-2019-0418644

PATIENT
  Age: 68 Year
  Sex: Female

DRUGS (1)
  1. SOFOSBUVIR W/VELPATASVIR [Suspect]
     Active Substance: SOFOSBUVIR\VELPATASVIR
     Indication: HEPATITIS C
     Dosage: 1 DOSAGE FORM, QD
     Route: 048
     Dates: start: 20190405

REACTIONS (4)
  - Pruritus generalised [Recovering/Resolving]
  - Eczema asteatotic [Recovering/Resolving]
  - Erythema [Recovering/Resolving]
  - Stasis dermatitis [Recovering/Resolving]

NARRATIVE: CASE EVENT DATE: 20190614
